FAERS Safety Report 23798096 (Version 1)
Quarter: 2024Q2

REPORT INFORMATION
  Report Type: Report from Study
  Country: US (occurrence: US)
  Receive Date: 20240430
  Receipt Date: 20240430
  Transmission Date: 20240716
  Serious: Yes (Other)
  Sender: FDA-Public Use
  Company Number: US-ABBVIE-5734210

PATIENT
  Age: 63 Year
  Sex: Male

DRUGS (1)
  1. LINZESS [Suspect]
     Active Substance: LINACLOTIDE
     Indication: Product used for unknown indication
     Dosage: FORM STRENGTH: 145 MICROGRAM?LAST DOSE TAKEN: MAR 2024
     Route: 048

REACTIONS (11)
  - Umbilical hernia [Not Recovered/Not Resolved]
  - Stress [Unknown]
  - Prostatomegaly [Not Recovered/Not Resolved]
  - Diverticulitis [Unknown]
  - Gastritis [Not Recovered/Not Resolved]
  - Insomnia [Unknown]
  - Pain [Not Recovered/Not Resolved]
  - Viral infection [Unknown]
  - Constipation [Recovering/Resolving]
  - Memory impairment [Not Recovered/Not Resolved]
  - Polyp [Unknown]

NARRATIVE: CASE EVENT DATE: 20240101
